FAERS Safety Report 4832494-1 (Version None)
Quarter: 2005Q4

REPORT INFORMATION
  Report Type: 
  Country: None (occurrence: None)
  Receive Date: 20051121
  Receipt Date: 20051110
  Transmission Date: 20060501
  Serious: Yes (Hospitalization)
  Sender: FDA-Public Use
  Company Number: AU-NOVOPROD-248471

PATIENT
  Age: 72 Year
  Sex: Male

DRUGS (3)
  1. PROTAPHANE PENFILL [Suspect]
     Indication: DIABETES MELLITUS
  2. HUMALOG [Concomitant]
  3. LANTUS [Concomitant]

REACTIONS (4)
  - CORONARY ARTERY SURGERY [None]
  - NEUROPATHY [None]
  - VASCULAR OPERATION [None]
  - VASODILATION PROCEDURE [None]
